FAERS Safety Report 25808809 (Version 1)
Quarter: 2025Q3

REPORT INFORMATION
  Report Type: Spontaneous
  Country: US (occurrence: US)
  Receive Date: 20250916
  Receipt Date: 20250916
  Transmission Date: 20251020
  Serious: No
  Sender: ABBVIE
  Company Number: US-ABBVIE-6460220

PATIENT
  Sex: Female

DRUGS (1)
  1. SKYRIZI [Suspect]
     Active Substance: RISANKIZUMAB-RZAA
     Indication: Psoriasis
     Route: 058
     Dates: start: 20250602

REACTIONS (5)
  - Urine odour abnormal [Unknown]
  - Urine abnormality [Unknown]
  - Rash [Unknown]
  - Paraesthesia [Unknown]
  - Rash papular [Unknown]

NARRATIVE: CASE EVENT DATE: 20250101
